FAERS Safety Report 9418926 (Version 1)
Quarter: 2013Q3

REPORT INFORMATION
  Report Type: Spontaneous
  Country: US (occurrence: US)
  Receive Date: 20130725
  Receipt Date: 20130725
  Transmission Date: 20140515
  Serious: Yes (Hospitalization, Other)
  Sender: FDA-Public Use
  Company Number: US-ELI_LILLY_AND_COMPANY-US201307006043

PATIENT
  Sex: Female
  Weight: 63.49 kg

DRUGS (1)
  1. HUMALOG LISPRO [Suspect]
     Dosage: UNK
     Route: 058

REACTIONS (3)
  - Blood glucose decreased [Unknown]
  - Exposure during pregnancy [Not Recovered/Not Resolved]
  - Blood glucose increased [Unknown]
